FAERS Safety Report 6235499-1 (Version None)
Quarter: 2009Q2

REPORT INFORMATION
  Report Type: 
  Country: None (occurrence: None)
  Receive Date: 20090618
  Receipt Date: 20080530
  Transmission Date: 20091009
  Serious: No
  Sender: FDA-Public Use
  Company Number: US-ASTRAZENECA-2008UW11120

PATIENT
  Age: 47 Year
  Sex: Male

DRUGS (1)
  1. RHINOCORT [Suspect]
     Route: 045

REACTIONS (1)
  - DRY THROAT [None]
